FAERS Safety Report 5357784-8 (Version None)
Quarter: 2007Q2

REPORT INFORMATION
  Report Type: 
  Country: None (occurrence: None)
  Receive Date: 20070530
  Receipt Date: 20070321
  Transmission Date: 20071010
  Serious: Yes (Other)
  Sender: FDA-Public Use
  Company Number: US200703004408

PATIENT
  Age: 66 Year
  Sex: Male
  Weight: 94.3 kg

DRUGS (2)
  1. ZYPREXA [Suspect]
     Indication: SCHIZOPHRENIA
     Dates: end: 20040101
  2. TRANXENE [Concomitant]

REACTIONS (3)
  - INCREASED APPETITE [None]
  - TOOTH LOSS [None]
  - WEIGHT INCREASED [None]
